FAERS Safety Report 12786637 (Version 1)
Quarter: 2016Q3

REPORT INFORMATION
  Report Type: Spontaneous
  Country: US (occurrence: US)
  Receive Date: 20160927
  Receipt Date: 20160927
  Transmission Date: 20161109
  Serious: Yes (Hospitalization)
  Sender: FDA-Public Use
  Company Number: None

PATIENT
  Age: 68 Year
  Sex: Male
  Weight: 71.5 kg

DRUGS (7)
  1. REGORAFINIB [Suspect]
     Active Substance: REGORAFENIB
     Indication: COLORECTAL CANCER METASTATIC
     Route: 048
     Dates: start: 20160705, end: 20160717
  2. NEXIUM [Concomitant]
     Active Substance: ESOMEPRAZOLE MAGNESIUM
  3. FINASTERIDE. [Concomitant]
     Active Substance: FINASTERIDE
  4. TAMSULOSIN [Concomitant]
     Active Substance: TAMSULOSIN
  5. DIAZEPAM. [Concomitant]
     Active Substance: DIAZEPAM
  6. MORPHINE [Concomitant]
     Active Substance: MORPHINE
  7. FERROUS SULFATE. [Concomitant]
     Active Substance: FERROUS SULFATE

REACTIONS (11)
  - Hyponatraemia [None]
  - Urinary retention [None]
  - Dehydration [None]
  - Metastases to lung [None]
  - Systemic inflammatory response syndrome [None]
  - Condition aggravated [None]
  - Abdominal pain [None]
  - Small intestinal obstruction [None]
  - General physical health deterioration [None]
  - Asthenia [None]
  - Hydronephrosis [None]

NARRATIVE: CASE EVENT DATE: 20160718
